FAERS Safety Report 21374256 (Version 1)
Quarter: 2022Q3

REPORT INFORMATION
  Report Type: Spontaneous
  Country: PL (occurrence: PL)
  Receive Date: 20220926
  Receipt Date: 20220926
  Transmission Date: 20221026
  Serious: Yes (Other)
  Sender: FDA-Public Use
  Company Number: PL-EXELTIS PHARMACEUTICAL HOLDING, S.L.-2206PL02692

PATIENT
  Age: 64 Year
  Sex: Male

DRUGS (7)
  1. TAMSULOSIN [Interacting]
     Active Substance: TAMSULOSIN
     Indication: Benign prostatic hyperplasia
     Dosage: 0.4 MILLIGRAM,ONCE A DAY(0.4 MILLIGRAM, QD)
     Route: 048
  2. METOPROLOL [Interacting]
     Active Substance: METOPROLOL
     Indication: Atrial fibrillation
     Dosage: 100 MILLIGRAM,ONCE A DAY(100 MILLIGRAM, QD)
     Route: 065
  3. CHONDROITIN SULFATE (BOVINE) [Interacting]
     Active Substance: CHONDROITIN SULFATE (BOVINE)
     Indication: Osteoarthritis
     Dosage: 1500 MILLIGRAM,ONCE A DAY(1500 MILLIGRAM, QD )
     Route: 065
  4. OMEPRAZOLE [Interacting]
     Active Substance: OMEPRAZOLE
     Indication: Prophylaxis against gastrointestinal ulcer
     Dosage: 40 MILLIGRAM,ONCE A DAY(40 MILLIGRAM, QD)
     Route: 065
  5. WARFARIN [Interacting]
     Active Substance: WARFARIN
     Indication: Atrial fibrillation
     Dosage: DOSE ADJUSTED TO INR
     Route: 065
  6. LORNOXICAM [Interacting]
     Active Substance: LORNOXICAM
     Indication: Osteoarthritis
     Dosage: 8 MILLIGRAM,ONCE A DAY(8 MILLIGRAM, QD)
     Route: 065
  7. PROPAFENONE [Interacting]
     Active Substance: PROPAFENONE
     Indication: Atrial fibrillation
     Dosage: 300 MILLIGRAM, ONCE A DAY(300 MILLIGRAM,QD)
     Route: 065

REACTIONS (3)
  - Upper gastrointestinal haemorrhage [Unknown]
  - Drug interaction [Unknown]
  - Haematuria [Unknown]
